FAERS Safety Report 6495170-8 (Version None)
Quarter: 2009Q4

REPORT INFORMATION
  Report Type: 
  Country: None (occurrence: None)
  Receive Date: 20091214
  Receipt Date: 20090507
  Transmission Date: 20100525
  Serious: No
  Sender: FDA-Public Use
  Company Number: US-BRISTOL-MYERS SQUIBB COMPANY-14616809

PATIENT

DRUGS (3)
  1. ABILIFY [Suspect]
  2. HALDOL [Suspect]
  3. BENADRYL [Suspect]

REACTIONS (2)
  - BONE DISORDER [None]
  - SOFT TISSUE DISORDER [None]
